FAERS Safety Report 7090611-X (Version None)
Quarter: 2010Q4

REPORT INFORMATION
  Report Type: 
  Country: None (occurrence: None)
  Receive Date: 20101109
  Receipt Date: 20101021
  Transmission Date: 20110411
  Serious: Yes (Hospitalization)
  Sender: FDA-Public Use
  Company Number: FR-BAYER-201040857GPV

PATIENT
  Age: 34 Year
  Sex: Female

DRUGS (1)
  1. MIRENA [Suspect]
     Indication: PRODUCT USED FOR UNKNOWN INDICATION
     Route: 015
     Dates: start: 20080901, end: 20100101

REACTIONS (7)
  - ABDOMINAL PAIN [None]
  - DRUG EXPOSURE DURING PREGNANCY [None]
  - ECTOPIC PREGNANCY WITH INTRAUTERINE DEVICE [None]
  - PELVIC FLUID COLLECTION [None]
  - SHOCK HAEMORRHAGIC [None]
  - UTERINE MASS [None]
  - VAGINAL HAEMORRHAGE [None]
